FAERS Safety Report 14641596 (Version 3)
Quarter: 2018Q3

REPORT INFORMATION
  Report Type: Spontaneous
  Country: RU (occurrence: RU)
  Receive Date: 20180315
  Receipt Date: 20180725
  Transmission Date: 20181010
  Serious: Yes (Hospitalization, Disabling, Other)
  Sender: FDA-Public Use
  Company Number: RU-ASTRAZENECA-2018SE11704

PATIENT
  Age: 58 Year
  Sex: Male
  Weight: 75 kg

DRUGS (7)
  1. CARDIKET [Concomitant]
     Active Substance: ISOSORBIDE DINITRATE
  2. BIPROL [Concomitant]
     Active Substance: BISOPROLOL FUMARATE
  3. ACETYLSALICYLIC ACID [Concomitant]
     Active Substance: ASPIRIN
  4. LISINOPRIL. [Concomitant]
     Active Substance: LISINOPRIL
  5. ATORVASTATIN [Concomitant]
     Active Substance: ATORVASTATIN
  6. BRILINTA [Suspect]
     Active Substance: TICAGRELOR
     Indication: MYOCARDIAL INFARCTION
     Route: 048
     Dates: start: 20171114
  7. OMEPRAZOLE. [Concomitant]
     Active Substance: OMEPRAZOLE

REACTIONS (15)
  - Bleeding time prolonged [Not Recovered/Not Resolved]
  - Cardiac arrest [Recovered/Resolved]
  - Vascular stent occlusion [Unknown]
  - Headache [Not Recovered/Not Resolved]
  - Erythema [Not Recovered/Not Resolved]
  - Nausea [Recovered/Resolved]
  - Vomiting [Recovered/Resolved]
  - Weight increased [Not Recovered/Not Resolved]
  - Vasodilatation [Not Recovered/Not Resolved]
  - Coronary artery occlusion [Unknown]
  - Small intestinal haemorrhage [Unknown]
  - Chest pain [Recovered/Resolved]
  - Hypersensitivity [Not Recovered/Not Resolved]
  - Nervousness [Not Recovered/Not Resolved]
  - Dyspnoea exertional [Not Recovered/Not Resolved]

NARRATIVE: CASE EVENT DATE: 20171113
